FAERS Safety Report 4746484-0 (Version None)
Quarter: 2005Q3

REPORT INFORMATION
  Report Type: 
  Country: None (occurrence: None)
  Receive Date: 20050817
  Receipt Date: 20050805
  Transmission Date: 20060218
  Serious: Yes (Hospitalization)
  Sender: FDA-Public Use
  Company Number: JP-JNJFOC-20050606809

PATIENT
  Sex: Female
  Weight: 43 kg

DRUGS (27)
  1. REMICADE [Suspect]
     Route: 065
  2. REMICADE [Suspect]
     Route: 065
  3. REMICADE [Suspect]
     Route: 065
  4. REMICADE [Suspect]
     Route: 065
  5. REMICADE [Suspect]
     Route: 065
  6. REMICADE [Suspect]
     Indication: RHEUMATOID ARTHRITIS
     Route: 065
  7. RHEUMATREX [Concomitant]
     Route: 048
  8. RHEUMATREX [Concomitant]
     Indication: RHEUMATOID ARTHRITIS
     Route: 048
  9. ISCOTIN [Concomitant]
     Indication: TUBERCULOSIS PROPHYLAXIS
     Route: 048
  10. PREDNISOLONE [Concomitant]
     Route: 048
  11. LOXONIN [Concomitant]
     Route: 048
  12. BREDININ [Concomitant]
     Route: 048
  13. LEUCOVORIN [Concomitant]
     Route: 048
  14. LASIX [Concomitant]
     Route: 048
  15. ALFAROL [Concomitant]
     Route: 048
  16. PARIET [Concomitant]
     Route: 048
  17. DIAMOX [Concomitant]
     Route: 048
  18. GLUCONSAN K [Concomitant]
     Route: 048
  19. VITAMEDIN [Concomitant]
     Route: 048
  20. VITAMEDIN [Concomitant]
     Route: 048
  21. VITAMEDIN [Concomitant]
     Route: 048
  22. BENET [Concomitant]
     Indication: OSTEOPOROSIS
     Route: 048
  23. COTRIM [Concomitant]
     Route: 048
  24. COTRIM [Concomitant]
     Route: 048
  25. DIFLUCAN [Concomitant]
     Route: 048
  26. TAKEPRON [Concomitant]
     Indication: GASTRIC ULCER
     Route: 048
  27. FERROMIA [Concomitant]
     Route: 048

REACTIONS (9)
  - ANTIPHOSPHOLIPID SYNDROME [None]
  - BLOOD PRESSURE DECREASED [None]
  - DIARRHOEA [None]
  - HEADACHE [None]
  - INFUSION RELATED REACTION [None]
  - MALAISE [None]
  - PYREXIA [None]
  - RASH PRURITIC [None]
  - URTICARIA [None]
